FAERS Safety Report 8926721 (Version 1)
Quarter: 2012Q4

REPORT INFORMATION
  Report Type: 
  Country: US (occurrence: US)
  Receive Date: 20121127
  Receipt Date: 20121127
  Transmission Date: 20130627
  Serious: No
  Sender: FDA-Public Use
  Company Number: US-ASTRAZENECA-2012SE85441

PATIENT

DRUGS (2)
  1. TRAMADOL [Suspect]
     Route: 065
  2. ZOMIG [Suspect]
     Route: 048

REACTIONS (3)
  - Drug hypersensitivity [Unknown]
  - Migraine [Unknown]
  - Drug ineffective [Unknown]
